FAERS Safety Report 5456420-X (Version None)
Quarter: 2007Q3

REPORT INFORMATION
  Report Type: 
  Country: None (occurrence: None)
  Receive Date: 20070918
  Receipt Date: 20070912
  Transmission Date: 20080115
  Serious: Yes (Death, Hospitalization)
  Sender: FDA-Public Use
  Company Number: FR-ELI_LILLY_AND_COMPANY-FR200511001222

PATIENT
  Age: 48 Year
  Sex: Male
  Weight: 61 kg

DRUGS (5)
  1. ALIMTA [Suspect]
     Indication: NON-SMALL CELL LUNG CANCER
     Dosage: UNK, UNK
     Route: 042
     Dates: start: 20050603
  2. FOLIC ACID [Interacting]
     Indication: VITAMIN SUPPLEMENTATION
     Route: 048
  3. HYDROXOCOBALAMIN [Interacting]
     Route: 048
  4. MORPHINE [Concomitant]
     Route: 042
  5. ESOMEPRAZOLE MAGNESIUM [Concomitant]
     Dosage: 20 MG, DAILY (1/D)
     Route: 048

REACTIONS (2)
  - DRUG INTERACTION [None]
  - MALIGNANT NEOPLASM PROGRESSION [None]
